FAERS Safety Report 4707426-7 (Version None)
Quarter: 2005Q3

REPORT INFORMATION
  Report Type: 
  Country: None (occurrence: None)
  Receive Date: 20050706
  Receipt Date: 20050525
  Transmission Date: 20060218
  Serious: Yes (Hospitalization)
  Sender: FDA-Public Use
  Company Number: 2005SE03115

PATIENT
  Age: 28800 Day
  Sex: Male

DRUGS (18)
  1. BETALOC ZOK [Suspect]
     Indication: CARDIAC FAILURE
     Dosage: TOTAL DAILY DOSE: 25 MG ORAL
     Route: 048
     Dates: end: 20050330
  2. BETALOC ZOK [Suspect]
     Indication: HYPERTENSION
     Dosage: TOTAL DAILY DOSE: 25 MG ORAL
     Route: 048
     Dates: end: 20050330
  3. BETALOC ZOK [Suspect]
     Dosage: TOTAL DAILY DOSE: 25 MG ORAL
     Route: 048
     Dates: start: 20050331, end: 20050527
  4. BETALOC ZOK [Suspect]
     Dosage: TOTAL DAILY DOSE: 25 MG ORAL
     Route: 048
     Dates: start: 20050331, end: 20050527
  5. DIGIMERCK [Suspect]
     Indication: CARDIAC FAILURE
     Route: 048
     Dates: start: 20041201, end: 20050526
  6. ROSUVASTATIN CODE NOT BROKEN [Suspect]
     Indication: CARDIAC FAILURE CHRONIC
     Route: 048
     Dates: start: 20041229
  7. SYNCUMAR [Concomitant]
     Indication: ATRIAL FIBRILLATION
     Dosage: TOTAL DAILY DOSE: 2 MG ORAL
     Route: 048
  8. FUROSEMIDE [Concomitant]
     Indication: CARDIAC FAILURE
     Dosage: TOTAL DAILY DOSE: 120 MG ORAL
     Route: 048
     Dates: start: 20041201, end: 20050526
  9. FUROSEMIDE [Concomitant]
     Dosage: TOTAL DAILY DOSE: 60 MG ORAL
     Route: 048
     Dates: start: 20050527, end: 20050531
  10. FUROSEMIDE [Concomitant]
     Dosage: TOTAL DAILY DOSE: 40 MG ORAL
     Route: 048
     Dates: start: 20050601
  11. MILURIT [Concomitant]
     Indication: BLOOD URIC ACID INCREASED
     Dosage: TOTAL DAILY DOSE: 300 MG ORAL
     Route: 048
     Dates: start: 20041201, end: 20050526
  12. PREDUCTAL MR [Concomitant]
     Indication: MYOCARDIAL ISCHAEMIA
     Dosage: TOTAL DAILY DOSE: 70 MG ORAL
     Route: 048
     Dates: start: 20041201
  13. HYPOTHIAZID [Concomitant]
     Indication: HYPERTENSION
     Dosage: TOTAL DAILY DOSE: 12.5 MG ORAL
     Route: 048
     Dates: start: 20041229, end: 20050527
  14. TENAXUM [Concomitant]
     Indication: HYPERTENSION
     Dosage: TOTAL DAILY DOSE: 2 MG ORAL
     Route: 048
     Dates: start: 20050330, end: 20050526
  15. CARDURA XL [Concomitant]
     Indication: HYPERTENSION
     Dosage: TOTAL DAILY DOSE: 4 MG ORAL
     Route: 048
     Dates: start: 20050330, end: 20050526
  16. NORMODIPINE [Concomitant]
     Indication: HYPERTENSION
     Route: 048
     Dates: end: 20050330
  17. NORMODIPINE [Concomitant]
     Route: 048
     Dates: start: 20050331, end: 20050526
  18. NORMODIPINE [Concomitant]
     Route: 048
     Dates: start: 20050527

REACTIONS (2)
  - BLOOD POTASSIUM INCREASED [None]
  - BRADYARRHYTHMIA [None]
